FAERS Safety Report 8622264-0 (Version None)
Quarter: 2012Q3

REPORT INFORMATION
  Report Type: 
  Country: None (occurrence: None)
  Receive Date: 20120827
  Receipt Date: 20120815
  Transmission Date: 20120928
  Serious: Yes (Other)
  Sender: FDA-Public Use
  Company Number: BR-AMGEN-BRASP2012011967

PATIENT
  Age: 51 Year
  Sex: Female
  Weight: 76 kg

DRUGS (2)
  1. ACETAMINOPHEN [Concomitant]
     Indication: HEADACHE
     Dosage: UNK
  2. ENBREL [Suspect]
     Indication: RHEUMATOID ARTHRITIS
     Dosage: 50 MG, QWK
     Route: 058
     Dates: start: 20111101, end: 20120301

REACTIONS (13)
  - HYPERSENSITIVITY [None]
  - INJECTION SITE WARMTH [None]
  - TONGUE DRY [None]
  - COUGH [None]
  - ANAPHYLACTIC SHOCK [None]
  - DYSPNOEA [None]
  - THROAT IRRITATION [None]
  - GLOSSODYNIA [None]
  - DRY THROAT [None]
  - SWOLLEN TONGUE [None]
  - NASAL CONGESTION [None]
  - HEADACHE [None]
  - INJECTION SITE ERYTHEMA [None]
